FAERS Safety Report 6574400-8 (Version None)
Quarter: 2010Q1

REPORT INFORMATION
  Report Type: 
  Country: None (occurrence: None)
  Receive Date: 20100209
  Receipt Date: 20100205
  Transmission Date: 20100710
  Serious: Yes (Hospitalization)
  Sender: FDA-Public Use
  Company Number: JP-BIOGENIDEC-2009BI014525

PATIENT
  Age: 33 Year
  Sex: Female

DRUGS (12)
  1. AVONEX [Suspect]
     Indication: RELAPSING-REMITTING MULTIPLE SCLEROSIS
     Route: 030
     Dates: start: 20090204
  2. AVONEX [Suspect]
     Route: 030
     Dates: start: 20090807
  3. LENDORMIN [Concomitant]
     Indication: DRUG USE FOR UNKNOWN INDICATION
  4. DEPAS [Concomitant]
     Indication: DRUG USE FOR UNKNOWN INDICATION
  5. ROHYPNOL [Concomitant]
     Indication: DRUG USE FOR UNKNOWN INDICATION
  6. VOLTAREN [Concomitant]
     Indication: DRUG USE FOR UNKNOWN INDICATION
  7. FERRUM [Concomitant]
     Indication: DRUG USE FOR UNKNOWN INDICATION
     Dates: start: 20090424
  8. NAIXAN [Concomitant]
     Dates: start: 20090513
  9. MUCOSTA [Concomitant]
     Dates: start: 20090513
  10. SENNOSIDE [Concomitant]
     Dates: start: 20090514
  11. ACTIT [Concomitant]
     Dates: start: 20090512, end: 20090516
  12. MYONAL [Concomitant]
     Indication: DRUG USE FOR UNKNOWN INDICATION
     Dates: start: 20090520

REACTIONS (4)
  - BLOOD POTASSIUM DECREASED [None]
  - DIZZINESS POSTURAL [None]
  - MULTIPLE SCLEROSIS RELAPSE [None]
  - PALPITATIONS [None]
